FAERS Safety Report 8793742 (Version 2)
Quarter: 2013Q1

REPORT INFORMATION
  Report Type: Spontaneous
  Country: US (occurrence: US)
  Receive Date: 20120918
  Receipt Date: 20130322
  Transmission Date: 20140127
  Serious: Yes (Other)
  Sender: FDA-Public Use
  Company Number: US-BAYER-2012-096607

PATIENT
  Age: 48 Year
  Sex: Female

DRUGS (8)
  1. YAZ [Suspect]
     Indication: ENDOMETRIOSIS
  2. CYMBALTA [Concomitant]
     Dosage: 60 MG, UNK
     Dates: start: 20110121, end: 20120316
  3. LEVOCETIRIZINE [Concomitant]
     Dosage: 5 MG, UNK
     Dates: start: 20110121, end: 20120805
  4. PATANOL [Concomitant]
     Dosage: UNK
     Dates: start: 20111210
  5. TOBRAMYCIN [Concomitant]
     Dosage: UNK
     Dates: start: 20111212
  6. DEXAMETHASON [DEXAMETHASONE] [Concomitant]
  7. CIPROFLOXACIN [Concomitant]
     Dosage: UNK
     Dates: start: 20111209
  8. XYZAL [Concomitant]

REACTIONS (2)
  - Retinal vein occlusion [Recovering/Resolving]
  - Cholecystitis [None]
